FAERS Safety Report 13024870 (Version 1)
Quarter: 2016Q4

REPORT INFORMATION
  Report Type: Report from Study
  Country: None (occurrence: US)
  Receive Date: 20161213
  Receipt Date: 20161213
  Transmission Date: 20170207
  Serious: Yes (Other)
  Sender: FDA-Public Use
  Company Number: US-ABBVIE-16P-163-1809183-00

PATIENT
  Age: 32 Year
  Sex: Male

DRUGS (2)
  1. VIEKIRA PAK [Suspect]
     Active Substance: DASABUVIR\OMBITASVIR\PARITAPREVIR\RITONAVIR
     Indication: CHRONIC HEPATITIS C
     Route: 048
     Dates: start: 20160219, end: 20160526
  2. RIBAVIRIN. [Suspect]
     Active Substance: RIBAVIRIN
     Indication: CHRONIC HEPATITIS C
     Route: 048
     Dates: start: 20160219, end: 20160526

REACTIONS (13)
  - Nausea [Unknown]
  - Melaena [Unknown]
  - Hypertension [Unknown]
  - Hyperglycaemia [Unknown]
  - Anaemia [Unknown]
  - Abdominal pain [Unknown]
  - Acute kidney injury [Unknown]
  - Tachycardia [Unknown]
  - Constipation [Unknown]
  - Vomiting [Unknown]
  - Diabetic gastroparesis [Unknown]
  - Diarrhoea [Unknown]
  - Lethargy [Unknown]

NARRATIVE: CASE EVENT DATE: 20160412
